FAERS Safety Report 4582283-0 (Version None)
Quarter: 2005Q1

REPORT INFORMATION
  Report Type: 
  Country: None (occurrence: None)
  Receive Date: 20050211
  Receipt Date: 20050211
  Transmission Date: 20050727
  Serious: Yes (Life-Threatening)
  Sender: FDA-Public Use
  Company Number: None

PATIENT
  Age: 16 Year
  Sex: Female
  Weight: 83.9154 kg

DRUGS (3)
  1. ACETADOTE [Suspect]
     Indication: OVERDOSE
     Dosage: 12613 MG IV
     Route: 042
     Dates: start: 20050107
  2. PHENERGAN [Concomitant]
  3. TORADOL [Concomitant]

REACTIONS (8)
  - BLOOD PRESSURE DECREASED [None]
  - DYSPNOEA [None]
  - HEART RATE INCREASED [None]
  - HOT FLUSH [None]
  - INFUSION RELATED REACTION [None]
  - OXYGEN SATURATION DECREASED [None]
  - RESPIRATORY RATE INCREASED [None]
  - WHEEZING [None]
